FAERS Safety Report 8519885 (Version 5)
Quarter: 2012Q4

REPORT INFORMATION
  Report Type: 
  Country: NO (occurrence: NO)
  Receive Date: 20120418
  Receipt Date: 20121030
  Transmission Date: 20130627
  Serious: Yes (Other)
  Sender: FDA-Public Use
  Company Number: NO-BAXTER-2012BAX000006

PATIENT
  Age: 52 Year
  Sex: Female

DRUGS (5)
  1. KIOVIG 100 MG/ML INFUSJONSV?SKE, OPPL?SNING [Suspect]
     Indication: POLYNEUROPATHY
     Route: 065
     Dates: start: 201110
  2. KIOVIG 100 MG/ML INFUSJONSV?SKE, OPPL?SNING [Suspect]
     Indication: INTENTIONAL USE FOR UNLABELED INDICATION
     Route: 065
     Dates: start: 20120305, end: 20120309
  3. KIOVIG 100 MG/ML INFUSJONSV?SKE, OPPL?SNING [Suspect]
     Route: 065
     Dates: start: 20120416, end: 20120420
  4. KIOVIG 100 MG/ML INFUSJONSV?SKE, OPPL?SNING [Suspect]
     Route: 065
     Dates: start: 20120521, end: 20120525
  5. KIOVIG 100 MG/ML INFUSJONSV?SKE, OPPL?SNING [Suspect]
     Route: 065
     Dates: start: 20120625, end: 20120628

REACTIONS (2)
  - Hepatitis B surface antibody positive [Not Recovered/Not Resolved]
  - Hepatitis B core antibody positive [Not Recovered/Not Resolved]
